FAERS Safety Report 22653409 (Version 1)
Quarter: 2023Q2

REPORT INFORMATION
  Report Type: Spontaneous
  Country: ES (occurrence: ES)
  Receive Date: 20230629
  Receipt Date: 20230629
  Transmission Date: 20230722
  Serious: Yes (Life-Threatening, Hospitalization)
  Sender: FDA-Public Use
  Company Number: ES-TEVA-2023-ES-2901245

PATIENT
  Age: 9 Year
  Sex: Male

DRUGS (5)
  1. LEVETIRACETAM [Suspect]
     Active Substance: LEVETIRACETAM
     Indication: Status epilepticus
     Dosage: 10 MG/KG DAILY;
     Route: 065
     Dates: start: 201909
  2. VALPROATE [Suspect]
     Active Substance: VALPROIC ACID
     Indication: Status epilepticus
     Dosage: LOADING DOSE OF 20 MG/KG
     Route: 065
     Dates: start: 201909
  3. PHENYTOIN [Suspect]
     Active Substance: PHENYTOIN
     Indication: Status epilepticus
     Route: 065
     Dates: start: 201909
  4. MIDAZOLAM [Concomitant]
     Active Substance: MIDAZOLAM
     Indication: Status epilepticus
     Dosage: 3 DOSES OF MIDAZOLAM (0.2 MG/KG)
     Route: 042
     Dates: start: 201909
  5. MIDAZOLAM [Concomitant]
     Active Substance: MIDAZOLAM
     Dosage: 2.4 MG/KG DAILY; PERFUSION (0.1 MG/KG/H)
     Route: 065
     Dates: start: 201909

REACTIONS (1)
  - Drug ineffective [Unknown]
